FAERS Safety Report 8429461-8 (Version None)
Quarter: 2012Q2

REPORT INFORMATION
  Report Type: 
  Country: None (occurrence: None)
  Receive Date: 20120612
  Receipt Date: 20120607
  Transmission Date: 20120825
  Serious: Yes (Hospitalization)
  Sender: FDA-Public Use
  Company Number: US-PURDUE-USA-2011-0076508

PATIENT
  Sex: Female

DRUGS (2)
  1. OXYCONTIN [Suspect]
     Indication: PRODUCT USED FOR UNKNOWN INDICATION
     Dosage: 80 MG, Q12H
     Route: 048
  2. IMURAN [Suspect]
     Indication: PRODUCT USED FOR UNKNOWN INDICATION
     Dosage: UNK
     Dates: start: 20120501

REACTIONS (6)
  - PNEUMONIA [None]
  - PLEURAL EFFUSION [None]
  - VOMITING [None]
  - PAIN [None]
  - RHEUMATOID ARTHRITIS [None]
  - BRONCHITIS [None]
